FAERS Safety Report 5245465-0 (Version None)
Quarter: 2007Q1

REPORT INFORMATION
  Report Type: 
  Country: None (occurrence: None)
  Receive Date: 20070223
  Receipt Date: 20070213
  Transmission Date: 20070707
  Serious: Yes (Death)
  Sender: FDA-Public Use
  Company Number: JP-JNJFOC-20070106686

PATIENT
  Sex: Female
  Weight: 100 kg

DRUGS (11)
  1. RISPERDAL [Suspect]
     Indication: SCHIZOPHRENIA
     Route: 048
  2. RISPERDAL [Suspect]
     Route: 048
  3. SEROQUEL [Concomitant]
     Route: 048
  4. SEROQUEL [Concomitant]
     Route: 048
  5. ARTANE [Concomitant]
     Indication: SCHIZOPHRENIA
     Route: 048
  6. LORAZEPAM [Concomitant]
     Route: 048
  7. HIRNAMIN [Concomitant]
     Route: 048
  8. JU-KAMA [Concomitant]
     Route: 048
  9. PURSENNID [Concomitant]
     Route: 048
  10. CARBAMAZEPINE [Concomitant]
     Route: 048
  11. VALPROATE SODIUM [Concomitant]
     Route: 048

REACTIONS (5)
  - ASPIRATION [None]
  - DIABETES MELLITUS [None]
  - DIABETIC KETOACIDOSIS [None]
  - POLYDIPSIA [None]
  - THIRST [None]
